FAERS Safety Report 15191947 (Version 1)
Quarter: 2018Q3

REPORT INFORMATION
  Report Type: Spontaneous
  Country: DE (occurrence: DE)
  Receive Date: 20180724
  Receipt Date: 20180724
  Transmission Date: 20181010
  Serious: Yes (Other)
  Sender: FDA-Public Use
  Company Number: PHHY2018DE051886

PATIENT
  Age: 74 Year
  Sex: Male

DRUGS (1)
  1. CETIRIZIN 1A PHARMA [Suspect]
     Active Substance: CETIRIZINE HYDROCHLORIDE
     Indication: PRODUCT USED FOR UNKNOWN INDICATION
     Dosage: 10 OT, BID  (1?0?1)
     Route: 065

REACTIONS (1)
  - Urinary retention [Unknown]
